FAERS Safety Report 6027540-6 (Version None)
Quarter: 2009Q1

REPORT INFORMATION
  Report Type: 
  Country: None (occurrence: None)
  Receive Date: 20090105
  Receipt Date: 20081023
  Transmission Date: 20090719
  Serious: No
  Sender: FDA-Public Use
  Company Number: US-BAYER-200814177BCC

PATIENT
  Age: 81 Year
  Sex: Female
  Weight: 70 kg

DRUGS (5)
  1. ALEVE [Suspect]
     Indication: ARTHRALGIA
     Dosage: AS USED: 220 MG  UNIT DOSE: 220 MG
     Dates: start: 20081022
  2. ALEVE [Suspect]
     Dosage: AS USED: 220 MG  UNIT DOSE: 220 MG
     Dates: start: 20081023
  3. ONE A DAY WOMENS 50+ ADVANTAGE [Concomitant]
  4. CALTRATE [Concomitant]
  5. FISH OIL [Concomitant]

REACTIONS (1)
  - TINNITUS [None]
